FAERS Safety Report 4855757-2 (Version None)
Quarter: 2005Q4

REPORT INFORMATION
  Report Type: 
  Country: None (occurrence: None)
  Receive Date: 20051215
  Receipt Date: 20051215
  Transmission Date: 20060501
  Serious: Yes (Death)
  Sender: FDA-Public Use
  Company Number: None

PATIENT
  Sex: Male

DRUGS (10)
  1. DOCETAXEL [Suspect]
     Indication: PANCREATIC CARCINOMA
     Dosage: 42.5 MG IV
     Route: 042
     Dates: start: 20051004
  2. CAPECITABINE [Suspect]
     Indication: PANCREATIC CARCINOMA
     Dosage: 2000 MG PO
     Route: 048
     Dates: start: 20051010
  3. OXYCONTIN [Concomitant]
  4. ROXICET [Concomitant]
  5. PROTONIX [Concomitant]
  6. PANCREATIC ENZYMES [Concomitant]
  7. FERROUS SUL ELX [Concomitant]
  8. VIT B6 [Concomitant]
  9. MULTIVITAMIN [Concomitant]
  10. COUMADIN [Concomitant]

REACTIONS (7)
  - ABDOMINAL PAIN [None]
  - ASTHENIA [None]
  - CONDITION AGGRAVATED [None]
  - DISEASE PROGRESSION [None]
  - FATIGUE [None]
  - HYPERKALAEMIA [None]
  - PERFORMANCE STATUS DECREASED [None]
